FAERS Safety Report 5733893-6 (Version None)
Quarter: 2008Q2

REPORT INFORMATION
  Report Type: 
  Country: None (occurrence: None)
  Receive Date: 20080509
  Receipt Date: 20080428
  Transmission Date: 20081010
  Serious: Yes (Hospitalization)
  Sender: FDA-Public Use
  Company Number: FR-PFIZER INC-2008037492

PATIENT
  Age: 17 Year
  Sex: Female

DRUGS (3)
  1. NEURONTIN [Suspect]
     Route: 048
  2. LYRICA [Suspect]
     Route: 048
     Dates: start: 20080117, end: 20080123
  3. TEGELINE [Concomitant]
     Route: 042
     Dates: start: 20080117, end: 20080121

REACTIONS (1)
  - COUGH [None]
